FAERS Safety Report 22111610 (Version 2)
Quarter: 2023Q2

REPORT INFORMATION
  Report Type: Spontaneous
  Country: US (occurrence: US)
  Receive Date: 20230318
  Receipt Date: 20230411
  Transmission Date: 20230721
  Serious: Yes (Death, Life-Threatening, Other)
  Sender: FDA-Public Use
  Company Number: US-MACLEODS PHARMACEUTICALS US LTD-MAC2023040305

PATIENT

DRUGS (11)
  1. CELECOXIB [Suspect]
     Active Substance: CELECOXIB
     Indication: Neuroblastoma recurrent
     Dosage: 500 MILLIGRAM/SQ. METER, QD(DAYS 1-42, CELEBREX, STOP DATE: 2006)
     Route: 065
     Dates: start: 20060914
  2. CELECOXIB [Suspect]
     Active Substance: CELECOXIB
     Indication: Retroperitoneal cancer
     Dosage: 200 MILLIGRAM, TID (DAYS 1-42, START DATE: 2006, STOP DATE: 06 NOV 2006)
     Route: 048
  3. CELECOXIB [Suspect]
     Active Substance: CELECOXIB
     Indication: Metastases to bone
  4. CYTOXAN [Concomitant]
     Active Substance: CYCLOPHOSPHAMIDE
     Indication: Retroperitoneal cancer
     Dosage: 75 MILLIGRAM/SQ. METER, QD
     Route: 048
  5. CYTOXAN [Concomitant]
     Active Substance: CYCLOPHOSPHAMIDE
     Indication: Metastases to bone
     Dosage: UNK (66%)
     Route: 048
     Dates: start: 20060123, end: 20060216
  6. CYTOXAN [Concomitant]
     Active Substance: CYCLOPHOSPHAMIDE
     Indication: Neuroblastoma recurrent
     Dosage: UNK (50%)
     Route: 048
     Dates: start: 20060216, end: 20060511
  7. CYTOXAN [Concomitant]
     Active Substance: CYCLOPHOSPHAMIDE
     Dosage: 50 MILLIGRAM/SQ. METER, QD
     Route: 048
     Dates: start: 20051010, end: 20061106
  8. CYTOXAN [Concomitant]
     Active Substance: CYCLOPHOSPHAMIDE
     Dosage: UNK (30%)
     Route: 048
     Dates: start: 20060511
  9. ETOPOSIDE [Concomitant]
     Active Substance: ETOPOSIDE
     Indication: Retroperitoneal cancer
     Dosage: 50 MILLIGRAM/SQ. METER, QD, DAYS 1-21 EVERY 42 DAYS
     Route: 048
     Dates: start: 20051010, end: 20061106
  10. ETOPOSIDE [Concomitant]
     Active Substance: ETOPOSIDE
     Indication: Metastases to bone
     Dosage: UNK
     Route: 065
     Dates: start: 20061105
  11. ETOPOSIDE [Concomitant]
     Active Substance: ETOPOSIDE
     Indication: Neuroblastoma recurrent
     Dosage: UNK
     Route: 065
     Dates: start: 20060511

REACTIONS (2)
  - Gastritis haemorrhagic [Fatal]
  - Upper gastrointestinal haemorrhage [Fatal]
